FAERS Safety Report 6413384-X (Version None)
Quarter: 2009Q4

REPORT INFORMATION
  Report Type: 
  Country: None (occurrence: None)
  Receive Date: 20091022
  Receipt Date: 20091022
  Transmission Date: 20100525
  Serious: Yes (Hospitalization)
  Sender: FDA-Public Use
  Company Number: None

PATIENT

DRUGS (1)
  1. TREND EXTREME MUSCLE ENHANCEMENT AMERICALL-LABS.COM VMG GLOBAL INC. [Suspect]

REACTIONS (1)
  - RHABDOMYOLYSIS [None]
